FAERS Safety Report 7607282-3 (Version None)
Quarter: 2011Q3

REPORT INFORMATION
  Report Type: 
  Country: None (occurrence: None)
  Receive Date: 20110713
  Receipt Date: 20110705
  Transmission Date: 20111222
  Serious: Yes (Death, Other)
  Sender: FDA-Public Use
  Company Number: CA-NAPPMUNDI-CAN-2010-0001587

PATIENT
  Age: 41 Year
  Sex: Female

DRUGS (11)
  1. OXYCONTIN [Suspect]
     Dosage: 700 MG, DAILY
     Dates: start: 20080701
  2. ALCOHOL [Suspect]
     Indication: PRODUCT USED FOR UNKNOWN INDICATION
     Dosage: UNK
  3. OXYCONTIN [Suspect]
     Dosage: 520 MG, DAILY
     Dates: start: 20080101
  4. OXYCONTIN [Suspect]
     Dosage: 1440 MG, DAILY
  5. OXYCONTIN [Suspect]
     Dosage: 960 MG, DAILY
     Dates: start: 20080901
  6. VENLAFAXINE [Suspect]
     Indication: PRODUCT USED FOR UNKNOWN INDICATION
     Dosage: UNK
     Route: 065
  7. ANXIOLYTICS [Suspect]
     Indication: PRODUCT USED FOR UNKNOWN INDICATION
  8. COCAINE [Suspect]
     Indication: PRODUCT USED FOR UNKNOWN INDICATION
     Dosage: UNK
  9. ANTIDEPRESSANTS [Suspect]
     Indication: PRODUCT USED FOR UNKNOWN INDICATION
  10. OXYCONTIN [Suspect]
     Indication: BACK PAIN
     Dosage: 120 MG, UNK
     Route: 065
     Dates: start: 20070101
  11. PAROXETINE HCL [Suspect]
     Indication: PRODUCT USED FOR UNKNOWN INDICATION
     Dosage: UNK
     Route: 065

REACTIONS (5)
  - DRUG DEPENDENCE [None]
  - DRUG DIVERSION [None]
  - SUBSTANCE ABUSE [None]
  - INTENTIONAL OVERDOSE [None]
  - CYANOSIS [None]
